FAERS Safety Report 9177813 (Version 1)
Quarter: 2012Q4

REPORT INFORMATION
  Report Type: 
  Country: US (occurrence: US)
  Receive Date: 20121011
  Receipt Date: 20121011
  Transmission Date: 20130627
  Serious: Yes (Life-Threatening, Hospitalization, Other)
  Sender: FDA-Public Use
  Company Number: US-RB-045310-12

PATIENT
  Sex: Male

DRUGS (3)
  1. SUBOXONE UNSPECIFIED [Suspect]
     Indication: DRUG DEPENDENCE
     Route: 065
     Dates: start: 20120928
  2. METHADONE [Suspect]
     Indication: DETOXIFICATION
     Route: 065
     Dates: start: 201209, end: 201209
  3. LIBRIUM [Suspect]
     Indication: ALCOHOL WITHDRAWAL SYNDROME
     Route: 065
     Dates: start: 201209

REACTIONS (2)
  - Unresponsive to stimuli [Recovered/Resolved]
  - Miosis [Unknown]
